FAERS Safety Report 15158957 (Version 1)
Quarter: 2018Q3

REPORT INFORMATION
  Report Type: Spontaneous
  Country: ZA (occurrence: ZA)
  Receive Date: 20180718
  Receipt Date: 20180718
  Transmission Date: 20181010
  Serious: Yes (Death)
  Sender: FDA-Public Use
  Company Number: ZA-PFIZER INC-2018286404

PATIENT
  Age: 87 Year
  Sex: Male

DRUGS (1)
  1. ASPAVOR [Suspect]
     Active Substance: ATORVASTATIN
     Dosage: 40 MG, UNK

REACTIONS (1)
  - Death [Fatal]

NARRATIVE: CASE EVENT DATE: 20180426
